FAERS Safety Report 7268047-8 (Version None)
Quarter: 2011Q1

REPORT INFORMATION
  Report Type: 
  Country: None (occurrence: None)
  Receive Date: 20110201
  Receipt Date: 20110121
  Transmission Date: 20110831
  Serious: Yes (Hospitalization)
  Sender: FDA-Public Use
  Company Number: JP-GILEAD-2010-0032886

PATIENT
  Sex: Male

DRUGS (6)
  1. VALGANCICLOVIR [Concomitant]
     Dates: start: 20090131, end: 20090213
  2. MYCOBUTIN [Concomitant]
     Indication: PRODUCT USED FOR UNKNOWN INDICATION
     Dates: start: 20090312, end: 20091014
  3. ESANBUTOL [Concomitant]
     Indication: PRODUCT USED FOR UNKNOWN INDICATION
     Dates: start: 20090312, end: 20091014
  4. STOCRIN [Suspect]
     Indication: HIV INFECTION
     Route: 048
     Dates: start: 20090223
  5. VALGANCICLOVIR [Concomitant]
     Indication: HIV INFECTION
     Dates: start: 20090214, end: 20090708
  6. TRUVADA [Suspect]
     Indication: HIV INFECTION
     Route: 048
     Dates: start: 20090223

REACTIONS (2)
  - HERPES ZOSTER [None]
  - MYCOBACTERIUM AVIUM COMPLEX INFECTION [None]
